FAERS Safety Report 12964193 (Version 1)
Quarter: 2016Q4

REPORT INFORMATION
  Report Type: Spontaneous
  Country: CA (occurrence: CA)
  Receive Date: 20161122
  Receipt Date: 20161122
  Transmission Date: 20170207
  Serious: Yes (Other)
  Sender: FDA-Public Use
  Company Number: ALCN2016CA007857

PATIENT
  Age: 78 Year
  Sex: Male
  Weight: 90.7 kg

DRUGS (1)
  1. VITALUX [Suspect]
     Active Substance: MINERALS\VITAMINS
     Indication: PRODUCT USED FOR UNKNOWN INDICATION
     Dosage: 3 DF, QD
     Route: 048
     Dates: start: 20160719, end: 20161001

REACTIONS (1)
  - Hypersensitivity [Recovered/Resolved]
